FAERS Safety Report 25685254 (Version 3)
Quarter: 2025Q3

REPORT INFORMATION
  Report Type: Spontaneous
  Country: US (occurrence: US)
  Receive Date: 20250815
  Receipt Date: 20250908
  Transmission Date: 20251020
  Serious: Yes (Other)
  Sender: MALLINCKRODT
  Company Number: US-MALLINCKRODT-MNK202504936

PATIENT
  Age: 65 Year
  Sex: Male

DRUGS (2)
  1. CORTICOTROPIN [Suspect]
     Active Substance: CORTICOTROPIN
     Indication: Sympathetic ophthalmia
     Route: 058
     Dates: start: 20250418, end: 20250808
  2. EYSUVIS [Concomitant]
     Active Substance: LOTEPREDNOL ETABONATE

REACTIONS (8)
  - Atrial fibrillation [Unknown]
  - Fatigue [Unknown]
  - Fluid retention [Unknown]
  - Injection site inflammation [Unknown]
  - Rash [Unknown]
  - Dizziness [Recovered/Resolved]
  - Diarrhoea [Recovered/Resolved]
  - Peripheral swelling [Recovered/Resolved]

NARRATIVE: CASE EVENT DATE: 20250101
